FAERS Safety Report 12720752 (Version 1)
Quarter: 2016Q3

REPORT INFORMATION
  Report Type: Other
  Country: None (occurrence: US)
  Receive Date: 20160907
  Receipt Date: 20160907
  Transmission Date: 20161109
  Serious: No
  Sender: FDA-Public Use
  Company Number: US-COL_21261_2015

PATIENT
  Sex: Female

DRUGS (1)
  1. TOTAL TOOTHPASTE UNSPECIFIED [Suspect]
     Active Substance: SODIUM FLUORIDE\TRICLOSAN
     Indication: DENTAL DISORDER PROPHYLAXIS
     Dosage: A PEA SIZE AMOUNT/ A COUPLE TIMES A DAY/
     Route: 048
     Dates: start: 2015, end: 2015

REACTIONS (1)
  - Tooth fracture [Not Recovered/Not Resolved]

NARRATIVE: CASE EVENT DATE: 2015
